FAERS Safety Report 6666153-X (Version None)
Quarter: 2010Q2

REPORT INFORMATION
  Report Type: 
  Country: None (occurrence: None)
  Receive Date: 20100402
  Receipt Date: 20100326
  Transmission Date: 20101027
  Serious: Yes (Death, Hospitalization)
  Sender: FDA-Public Use
  Company Number: JP-MERCK-1003USA02548

PATIENT
  Age: 69 Year
  Sex: Male

DRUGS (7)
  1. JANUVIA [Suspect]
     Indication: DIABETES MELLITUS
     Route: 048
     Dates: start: 20100226, end: 20100307
  2. MICARDIS [Concomitant]
     Indication: HYPERTENSION
     Route: 048
     Dates: start: 20080520
  3. CLARITIN [Concomitant]
     Indication: RHINITIS ALLERGIC
     Route: 048
     Dates: start: 20080819
  4. PLETAL [Concomitant]
     Indication: CEREBROVASCULAR ACCIDENT PROPHYLAXIS
     Route: 048
     Dates: start: 20080624, end: 20100307
  5. METHYCOBAL [Concomitant]
     Indication: DIABETIC NEUROPATHY
     Route: 048
     Dates: start: 20080819
  6. MYONAL [Concomitant]
     Indication: SPINAL OSTEOARTHRITIS
     Route: 048
     Dates: start: 20080916
  7. DIGOXIN [Concomitant]
     Indication: CARDIAC FAILURE
     Route: 048
     Dates: start: 20080516

REACTIONS (1)
  - INTERSTITIAL LUNG DISEASE [None]
